FAERS Safety Report 9528783 (Version 1)
Quarter: 2013Q1

REPORT INFORMATION
  Report Type: Spontaneous
  Country: US (occurrence: None)
  Receive Date: 20130320
  Receipt Date: 20130320
  Transmission Date: 20140127
  Serious: Yes (Death)
  Sender: FDA-Public Use
  Company Number: 075797

PATIENT
  Age: 26 Year
  Sex: Female

DRUGS (2)
  1. ALPRAZOLAM [Suspect]
     Dosage: ( ) THERAPY DATES  (TO NOT CONTINUING)
  2. DROPERIDOL [Suspect]
     Dosage: {} THERAPY DATES ( TO NOT CONTINUING)

REACTIONS (1)
  - Toxicity to various agents [None]
